FAERS Safety Report 16446681 (Version 1)
Quarter: 2019Q2

REPORT INFORMATION
  Report Type: Spontaneous
  Country: GB (occurrence: GB)
  Receive Date: 20190618
  Receipt Date: 20190618
  Transmission Date: 20190711
  Serious: Yes (Hospitalization)
  Sender: FDA-Public Use
  Company Number: GB-PFIZER INC-2019252807

PATIENT
  Age: 21 Year
  Sex: Female

DRUGS (10)
  1. TRAMADOL HCL [Suspect]
     Active Substance: TRAMADOL HYDROCHLORIDE
     Dosage: UNK
     Route: 065
  2. CYCLIZINE [Suspect]
     Active Substance: CYCLIZINE
     Dosage: UNK
     Route: 065
  3. PRUCALOPRIDE [PRUCALOPRIDE SUCCINATE] [Suspect]
     Active Substance: PRUCALOPRIDE SUCCINATE
     Dosage: 2 MG, 1X/DAY (QD)
     Route: 048
  4. COCODAMOL [Suspect]
     Active Substance: ACETAMINOPHEN\CODEINE PHOSPHATE
     Dosage: 8 DF, 1X/DAY (QD)
     Route: 048
  5. GABAPENTIN. [Suspect]
     Active Substance: GABAPENTIN
     Dosage: 900 MG, 1X/DAY (QD)
     Route: 048
  6. DOMPERIDONE [Suspect]
     Active Substance: DOMPERIDONE
     Dosage: 10 MG, UNK
     Route: 048
  7. AMITRIPTYLINE [Suspect]
     Active Substance: AMITRIPTYLINE
     Dosage: 100 MG, 1X/DAY (QD)
     Route: 048
  8. PREGABALIN. [Suspect]
     Active Substance: PREGABALIN
     Dosage: UNK
     Route: 065
  9. BETAHISTINE [Suspect]
     Active Substance: BETAHISTINE
     Dosage: 24 MG, 1X/DAY (QD)
     Route: 048
  10. LANSOPRAZOLE. [Concomitant]
     Active Substance: LANSOPRAZOLE
     Dosage: UNK

REACTIONS (4)
  - Pituitary tumour benign [Unknown]
  - Hyperprolactinaemia [Recovering/Resolving]
  - Product use issue [Unknown]
  - Off label use [Unknown]
